FAERS Safety Report 6678776-2 (Version None)
Quarter: 2010Q2

REPORT INFORMATION
  Report Type: 
  Country: None (occurrence: None)
  Receive Date: 20100413
  Receipt Date: 20100331
  Transmission Date: 20101027
  Serious: Yes (Hospitalization)
  Sender: FDA-Public Use
  Company Number: MA-RANBAXY-2010RR-33073

PATIENT
  Age: 76 Year
  Sex: Female

DRUGS (3)
  1. PARACETAMOL [Suspect]
     Indication: ARTHRALGIA
  2. CELECOXIB [Suspect]
     Indication: ARTHRALGIA
  3. THIOCOLCHICOSIDE [Suspect]
     Indication: ARTHRALGIA

REACTIONS (1)
  - TOXIC EPIDERMAL NECROLYSIS [None]
